FAERS Safety Report 21741264 (Version 1)
Quarter: 2022Q4

REPORT INFORMATION
  Report Type: Spontaneous
  Country: US (occurrence: US)
  Receive Date: 20221216
  Receipt Date: 20221216
  Transmission Date: 20230113
  Serious: Yes (Other)
  Sender: FDA-Public Use
  Company Number: US-PFIZER INC-202201376101

PATIENT
  Age: 73 Year
  Sex: Female
  Weight: 98.88 kg

DRUGS (2)
  1. IBRANCE [Suspect]
     Active Substance: PALBOCICLIB
     Indication: Breast cancer metastatic
     Dosage: 125 MG
     Dates: end: 2022
  2. FULVESTRANT [Concomitant]
     Active Substance: FULVESTRANT
     Dosage: 25 MG, MONTHLY
     Route: 051

REACTIONS (4)
  - Leukopenia [Not Recovered/Not Resolved]
  - Folliculitis [Not Recovered/Not Resolved]
  - Dermatitis [Not Recovered/Not Resolved]
  - Rash pruritic [Not Recovered/Not Resolved]

NARRATIVE: CASE EVENT DATE: 20201201
